FAERS Safety Report 23660656 (Version 1)
Quarter: 2024Q1

REPORT INFORMATION
  Report Type: Spontaneous
  Country: GB (occurrence: GB)
  Receive Date: 20240322
  Receipt Date: 20240322
  Transmission Date: 20240410
  Serious: Yes (Other)
  Sender: FDA-Public Use
  Company Number: None

PATIENT
  Age: 32 Year
  Sex: Female
  Weight: 91 kg

DRUGS (10)
  1. DOXYCYCLINE [Suspect]
     Active Substance: DOXYCYCLINE
     Dosage: TWO NOW THEN ONE DAILY (PLEASE COMPLETE THE COU...
     Route: 065
     Dates: start: 20240221
  2. ALBUTEROL [Concomitant]
     Active Substance: ALBUTEROL
     Dosage: TIME INTERVAL: AS NECESSARY: INHALE 2 DOSES AS NEEDED
     Dates: start: 20230516
  3. MOMETASONE [Concomitant]
     Active Substance: MOMETASONE
     Dosage: TWO SPRAYS INTO EACH NOSTRIL DAILY UNTIL SYMPTO...
     Dates: start: 20240202
  4. CITALOPRAM [Concomitant]
     Active Substance: CITALOPRAM\CITALOPRAM HYDROBROMIDE
     Dosage: ONE TO BE TAKEN ONCE A DAY
     Dates: start: 20230919
  5. FEXOFENADINE [Concomitant]
     Active Substance: FEXOFENADINE HYDROCHLORIDE
     Dosage: TAKE ONE DAILY
     Dates: start: 20230516
  6. CLARITHROMYCIN [Concomitant]
     Active Substance: CLARITHROMYCIN
     Dosage: TAKE ONE TWICE DAILY FOR 5 DAYS
     Dates: start: 20240223
  7. BECLOMETHASONE\FORMOTEROL [Concomitant]
     Active Substance: BECLOMETHASONE\FORMOTEROL
     Dosage: TWO PUFFS TWICE DAILY
     Dates: start: 20230516
  8. MONTELUKAST [Concomitant]
     Active Substance: MONTELUKAST SODIUM
     Indication: Asthma prophylaxis
     Dosage: ONE TABLET AT NIGHT TO PREVENT ASTHMA
     Dates: start: 20240219
  9. PREDNISOLONE [Concomitant]
     Active Substance: PREDNISOLONE
     Dosage: TAKE 8 TABLETS A DAY FOR 5 DAYS
     Dates: start: 20240221
  10. ACETAZOLAMIDE [Suspect]
     Active Substance: ACETAZOLAMIDE
     Route: 065

REACTIONS (3)
  - Pain in extremity [Recovered/Resolved]
  - Drug interaction [Unknown]
  - Paraesthesia [Unknown]
